FAERS Safety Report 15926171 (Version 2)
Quarter: 2019Q2

REPORT INFORMATION
  Report Type: Spontaneous
  Country: US (occurrence: US)
  Receive Date: 20190206
  Receipt Date: 20190409
  Transmission Date: 20190711
  Serious: Yes (Hospitalization)
  Sender: FDA-Public Use
  Company Number: US-009507513-1901USA011585

PATIENT
  Sex: Female

DRUGS (1)
  1. NEXPLANON [Suspect]
     Active Substance: ETONOGESTREL
     Dosage: 1 IMPLANT
     Route: 059
     Dates: start: 20190118, end: 20190125

REACTIONS (3)
  - Implant site discharge [Unknown]
  - Purulent discharge [Unknown]
  - Implant site erythema [Unknown]

NARRATIVE: CASE EVENT DATE: 201901
